FAERS Safety Report 5810720-X (Version None)
Quarter: 2008Q3

REPORT INFORMATION
  Report Type: 
  Country: None (occurrence: None)
  Receive Date: 20080715
  Receipt Date: 20080710
  Transmission Date: 20090109
  Serious: Yes (Death, Hospitalization)
  Sender: FDA-Public Use
  Company Number: JP-ABBOTT-08P-087-0461958-00

PATIENT
  Sex: Male

DRUGS (4)
  1. KALETRA [Suspect]
     Indication: HIV INFECTION
     Dosage: 800/200MG
     Route: 048
     Dates: start: 20070401, end: 20070805
  2. STAVUDINE [Concomitant]
     Indication: HIV INFECTION
     Route: 048
     Dates: start: 20070401, end: 20070804
  3. ABACAVIR [Concomitant]
     Indication: HIV INFECTION
     Route: 048
     Dates: start: 20070401, end: 20070804
  4. RURIOCTOCOG ALFA [Concomitant]
     Indication: HAEMOPHILIA
     Route: 048
     Dates: start: 20070401, end: 20070808

REACTIONS (5)
  - ANOREXIA [None]
  - HEPATIC CIRRHOSIS [None]
  - HEPATIC ENCEPHALOPATHY [None]
  - HEPATIC FAILURE [None]
  - RESTLESSNESS [None]
